FAERS Safety Report 6353763-2 (Version None)
Quarter: 2009Q3

REPORT INFORMATION
  Report Type: 
  Country: None (occurrence: None)
  Receive Date: 20090912
  Receipt Date: 20090622
  Transmission Date: 20100115
  Serious: No
  Sender: FDA-Public Use
  Company Number: US-ABBOTT-08P-163-0463531-00

PATIENT
  Sex: Female
  Weight: 88.076 kg

DRUGS (5)
  1. HUMIRA [Suspect]
     Indication: CROHN'S DISEASE
     Dosage: 40 MG X 4
     Route: 050
     Dates: start: 20080707
  2. SULFASALAZINE [Concomitant]
     Indication: CROHN'S DISEASE
     Dosage: 500 MG, 2 X 2/DAY
     Route: 048
     Dates: start: 20070101
  3. HYOSCYAMINE [Concomitant]
     Indication: PAIN
     Route: 048
     Dates: start: 20080310
  4. FOLIC ACID [Concomitant]
     Indication: DRUG USE FOR UNKNOWN INDICATION
     Route: 048
     Dates: start: 20080401
  5. ERGOCALCIFEROL [Concomitant]
     Indication: VITAMIN D DECREASED
     Route: 048
     Dates: start: 20080301

REACTIONS (8)
  - BACK PAIN [None]
  - INCORRECT DOSE ADMINISTERED [None]
  - INJECTION SITE EXTRAVASATION [None]
  - INJECTION SITE IRRITATION [None]
  - INJECTION SITE PAIN [None]
  - OVARIAN CYST [None]
  - PAIN IN EXTREMITY [None]
  - URINARY TRACT INFECTION [None]
